FAERS Safety Report 24835226 (Version 1)
Quarter: 2025Q1

REPORT INFORMATION
  Report Type: Spontaneous
  Country: US (occurrence: US)
  Receive Date: 20250113
  Receipt Date: 20250113
  Transmission Date: 20250408
  Serious: Yes (Hospitalization)
  Sender: HIKMA
  Company Number: US-HIKMA PHARMACEUTICALS USA INC.-US-H14001-25-00245

PATIENT
  Age: 89 Year
  Sex: Female

DRUGS (1)
  1. HEPARIN [Suspect]
     Active Substance: HEPARIN SODIUM
     Indication: Acute myocardial infarction
     Route: 065

REACTIONS (2)
  - Shock haemorrhagic [Unknown]
  - Post procedural haemorrhage [Recovered/Resolved]
